FAERS Safety Report 6079774-2 (Version None)
Quarter: 2009Q1

REPORT INFORMATION
  Report Type: 
  Country: None (occurrence: None)
  Receive Date: 20090212
  Receipt Date: 20090203
  Transmission Date: 20090719
  Serious: Yes (Disabling)
  Sender: FDA-Public Use
  Company Number: 1000003862

PATIENT
  Age: 79 Year
  Sex: Female

DRUGS (2)
  1. MEMANTINE HCL [Suspect]
     Dosage: 10 MG (10 MG, 1 IN 1 D), ORAL
     Route: 048
     Dates: start: 20071026
  2. SEROQUEL [Suspect]

REACTIONS (4)
  - FALL [None]
  - FEMORAL NECK FRACTURE [None]
  - HAEMORRHAGE [None]
  - LACERATION [None]
